FAERS Safety Report 25312691 (Version 1)
Quarter: 2025Q2

REPORT INFORMATION
  Report Type: Spontaneous
  Country: CN (occurrence: CN)
  Receive Date: 20250514
  Receipt Date: 20250514
  Transmission Date: 20250717
  Serious: Yes (Hospitalization, Other)
  Sender: RANBAXY
  Company Number: CN-SUN PHARMACEUTICAL INDUSTRIES LTD-2025R1-507126

PATIENT
  Age: 32 Year
  Sex: Female

DRUGS (1)
  1. ASPIRIN [Suspect]
     Active Substance: ASPIRIN
     Indication: Gestational hypertension
     Dosage: 100 MILLIGRAM, DAILY
     Route: 048

REACTIONS (3)
  - Premature delivery [Unknown]
  - Haemorrhage intracranial [Unknown]
  - Exposure during pregnancy [Unknown]
